FAERS Safety Report 19087324 (Version 1)
Quarter: 2021Q2

REPORT INFORMATION
  Report Type: Other
  Country: ES (occurrence: ES)
  Receive Date: 20210402
  Receipt Date: 20210402
  Transmission Date: 20210717
  Serious: Yes (Hospitalization)
  Sender: FDA-Public Use
  Company Number: ES-ROCHE-2795989

PATIENT
  Age: 44 Year
  Sex: Female

DRUGS (2)
  1. OCRELIZUMAB. [Suspect]
     Active Substance: OCRELIZUMAB
     Indication: PRIMARY PROGRESSIVE MULTIPLE SCLEROSIS
     Dosage: ADMINISTERED AS TWO SEPARATED INFUSIONS OVER TWO WEEKS PERIOD
     Route: 042
  2. OCRELIZUMAB. [Suspect]
     Active Substance: OCRELIZUMAB
     Dosage: SECOND DOSE
     Route: 042
     Dates: start: 20200504

REACTIONS (3)
  - Oral herpes [Recovered/Resolved]
  - Ecthyma [Recovered/Resolved]
  - Febrile neutropenia [Recovered/Resolved]
